FAERS Safety Report 5440769-0 (Version None)
Quarter: 2007Q3

REPORT INFORMATION
  Report Type: 
  Country: None (occurrence: None)
  Receive Date: 20070831
  Receipt Date: 20070821
  Transmission Date: 20080115
  Serious: Yes (Hospitalization, Other)
  Sender: FDA-Public Use
  Company Number: PHHO2007US07078

PATIENT
  Age: 84 Year
  Sex: Male
  Weight: 75.011 kg

DRUGS (30)
  1. LOTREL [Suspect]
     Indication: HYPERTENSION
     Dosage: LEVEL 1
     Route: 048
     Dates: start: 20050222
  2. LOTREL [Suspect]
     Dosage: LEVEL 3
     Route: 048
  3. FLOMAX [Concomitant]
     Indication: BENIGN PROSTATIC HYPERPLASIA
     Dates: start: 20070115
  4. DETROL [Concomitant]
     Indication: URINARY INCONTINENCE
     Dates: start: 20070115
  5. LIPITOR [Concomitant]
  6. CALCIUM CARBONATE W/VITAMIN D NOS [Concomitant]
  7. ALLOPURINOL [Concomitant]
  8. DIFLUCAN [Concomitant]
  9. LISINOPRIL [Concomitant]
  10. NORVASC [Concomitant]
  11. CELEXA [Concomitant]
  12. PHOSLO [Concomitant]
  13. ARANESP [Concomitant]
  14. NEPHRO-VITE [Concomitant]
  15. FOLIC ACID [Concomitant]
  16. LASIX [Concomitant]
  17. LANTUS [Concomitant]
  18. INSULIN [Concomitant]
  19. METOPROLOL SUCCINATE [Concomitant]
  20. PROTONIX [Concomitant]
  21. HYTRIN [Concomitant]
  22. METRONIDAZOLE [Concomitant]
  23. COLCHICINE [Concomitant]
  24. PRANDIN [Concomitant]
  25. CEFAZOLIN [Concomitant]
  26. DILAUDID [Concomitant]
  27. VANCOMYCIN [Concomitant]
  28. OPIUM TINCTURE [Concomitant]
  29. MAGNESIUM OXIDE [Concomitant]
  30. FLORESTOR [Concomitant]

REACTIONS (46)
  - ABDOMINAL PAIN [None]
  - ANURIA [None]
  - ASTHENIA [None]
  - BLOOD CREATININE INCREASED [None]
  - CHEST PAIN [None]
  - COLITIS [None]
  - CONFUSIONAL STATE [None]
  - CONTUSION [None]
  - DEHYDRATION [None]
  - DEPRESSION [None]
  - DIARRHOEA [None]
  - DIZZINESS [None]
  - DYSPHAGIA [None]
  - ELECTROLYTE IMBALANCE [None]
  - ERYTHEMA [None]
  - EXCORIATION [None]
  - EYE MOVEMENT DISORDER [None]
  - FAILURE TO THRIVE [None]
  - FALL [None]
  - GAIT DISTURBANCE [None]
  - GASTROENTERITIS [None]
  - GASTROINTESTINAL SOUNDS ABNORMAL [None]
  - HEAD INJURY [None]
  - HYPERGLYCAEMIA [None]
  - HYPOKALAEMIA [None]
  - HYPOMAGNESAEMIA [None]
  - HYPOXIA [None]
  - INTERVERTEBRAL DISC DEGENERATION [None]
  - KLEBSIELLA INFECTION [None]
  - LETHARGY [None]
  - LEUKOCYTOSIS [None]
  - LUMBAR SPINAL STENOSIS [None]
  - LUNG DISORDER [None]
  - MUSCULAR WEAKNESS [None]
  - OEDEMA PERIPHERAL [None]
  - OLIGURIA [None]
  - ORAL INTAKE REDUCED [None]
  - PARAESTHESIA [None]
  - PARKINSONISM [None]
  - PLEURAL DISORDER [None]
  - PLEURAL EFFUSION [None]
  - PNEUMONIA ASPIRATION [None]
  - PYREXIA [None]
  - RENAL FAILURE ACUTE [None]
  - SUPRANUCLEAR PALSY [None]
  - WEIGHT DECREASED [None]
